FAERS Safety Report 23408303 (Version 2)
Quarter: 2024Q1

REPORT INFORMATION
  Report Type: Spontaneous
  Country: US (occurrence: US)
  Receive Date: 20240117
  Receipt Date: 20240122
  Transmission Date: 20240409
  Serious: Yes (Death, Hospitalization)
  Sender: FDA-Public Use
  Company Number: US-002147023-NVSC2024US009419

PATIENT
  Sex: Male

DRUGS (1)
  1. PLUVICTO [Suspect]
     Active Substance: LUTETIUM LU-177 VIPIVOTIDE TETRAXETAN
     Indication: Prostate cancer
     Dosage: UNK
     Route: 065
     Dates: start: 20230913

REACTIONS (3)
  - Death [Fatal]
  - Hypoxia [Fatal]
  - Respiratory failure [Fatal]
